FAERS Safety Report 8825282 (Version 1)
Quarter: 2012Q4

REPORT INFORMATION
  Report Type: 
  Country: GB (occurrence: GB)
  Receive Date: 20121004
  Receipt Date: 20121004
  Transmission Date: 20130627
  Serious: Yes (Disabling)
  Sender: FDA-Public Use
  Company Number: GB-WATSON-2012-16631

PATIENT
  Age: 89 Year
  Sex: Male

DRUGS (6)
  1. SIMVASTATIN (UNKNOWN) [Suspect]
     Indication: HYPERCHOLESTEROLAEMIA
     Dosage: 40 mg, daily (at night)
     Route: 048
     Dates: end: 20120829
  2. CYPROTERONE ACETATE [Suspect]
     Indication: PROSTATE CANCER
     Dosage: 100 mg, tid
     Route: 048
     Dates: start: 20120731, end: 20120829
  3. ALFACALCIDOL [Concomitant]
     Indication: PRODUCT USED FOR UNKNOWN INDICATION
     Dosage: UNK
     Route: 065
  4. AMLODIPINE [Concomitant]
     Indication: PRODUCT USED FOR UNKNOWN INDICATION
     Dosage: UNK
     Route: 065
  5. FERROUS FUMARATE [Concomitant]
     Indication: PRODUCT USED FOR UNKNOWN INDICATION
     Dosage: UNK
     Route: 065
  6. DECAPEPTYL                         /00486501/ [Concomitant]
     Indication: PRODUCT USED FOR UNKNOWN INDICATION
     Dosage: 11.25 mg, unknown
     Route: 030
     Dates: start: 20120821

REACTIONS (9)
  - Rhabdomyolysis [Recovered/Resolved with Sequelae]
  - Nausea [Unknown]
  - Asthenia [Unknown]
  - Blood creatine phosphokinase increased [Unknown]
  - Renal failure acute [Unknown]
  - Blood creatine increased [Unknown]
  - Alanine aminotransferase increased [Unknown]
  - Aspartate aminotransferase increased [Unknown]
  - Drug interaction [Unknown]
